FAERS Safety Report 22336882 (Version 1)
Quarter: 2023Q2

REPORT INFORMATION
  Report Type: Spontaneous
  Country: US (occurrence: US)
  Receive Date: 20230518
  Receipt Date: 20230518
  Transmission Date: 20230721
  Serious: No
  Sender: FDA-Public Use
  Company Number: US-JNJFOC-20230526988

PATIENT
  Age: 8 Year
  Sex: Female

DRUGS (3)
  1. CHILDRENS ZYRTEC ALLERGY [Suspect]
     Active Substance: CETIRIZINE HYDROCHLORIDE
     Indication: Eye allergy
     Dosage: SATURDAY NIGHT
     Route: 048
     Dates: start: 20230506
  2. CHILDRENS ZYRTEC ALLERGY [Suspect]
     Active Substance: CETIRIZINE HYDROCHLORIDE
     Dosage: SUNDAY AT 8:30PM
     Route: 048
     Dates: start: 20230507
  3. CHILDRENS ZYRTEC ALLERGY [Suspect]
     Active Substance: CETIRIZINE HYDROCHLORIDE
     Dosage: AT 8:00 PM
     Route: 048
     Dates: start: 20230508

REACTIONS (3)
  - Vomiting [Unknown]
  - Chest pain [Recovered/Resolved]
  - Dyspnoea [Unknown]

NARRATIVE: CASE EVENT DATE: 20230508
